FAERS Safety Report 5358860-6 (Version None)
Quarter: 2007Q2

REPORT INFORMATION
  Report Type: 
  Country: None (occurrence: None)
  Receive Date: 20070615
  Receipt Date: 20070606
  Transmission Date: 20071010
  Serious: Yes (Hospitalization)
  Sender: FDA-Public Use
  Company Number: JP-ROCHE-499451

PATIENT
  Age: 19 Year
  Sex: Male
  Weight: 58 kg

DRUGS (3)
  1. TAMIFLU [Suspect]
     Route: 048
     Dates: start: 20070517, end: 20070517
  2. CALONAL [Suspect]
     Indication: PYREXIA
     Route: 048
     Dates: start: 20070517, end: 20070517
  3. KAKKON-TO [Concomitant]
     Route: 048
     Dates: start: 20070517, end: 20070517

REACTIONS (1)
  - ABNORMAL BEHAVIOUR [None]
